APPROVED DRUG PRODUCT: TRAMADOL HYDROCHLORIDE
Active Ingredient: TRAMADOL HYDROCHLORIDE
Strength: 200MG
Dosage Form/Route: TABLET, EXTENDED RELEASE;ORAL
Application: A201384 | Product #002
Applicant: SUN PHARMACEUTICAL INDUSTRIES LTD
Approved: Dec 7, 2011 | RLD: No | RS: No | Type: DISCN